FAERS Safety Report 7382024-8 (Version None)
Quarter: 2011Q1

REPORT INFORMATION
  Report Type: 
  Country: None (occurrence: None)
  Receive Date: 20110329
  Receipt Date: 20110323
  Transmission Date: 20110831
  Serious: Yes (Life-Threatening, Hospitalization, Other)
  Sender: FDA-Public Use
  Company Number: DE-PFIZER INC-2011021673

PATIENT
  Age: 47 Year
  Sex: Female
  Weight: 87 kg

DRUGS (3)
  1. AROMASIN [Suspect]
     Indication: BREAST CANCER FEMALE
     Dosage: ONE TABLET, 1X/DAY
     Route: 048
     Dates: start: 20100501
  2. MARCUMAR [Concomitant]
     Dosage: UNK
     Dates: start: 19990101
  3. EMBOLEX [Concomitant]
     Dosage: 3000 IU, 2X/DAY
     Route: 048

REACTIONS (11)
  - MENINGEAL DISORDER [None]
  - VISUAL IMPAIRMENT [None]
  - BRAIN OEDEMA [None]
  - FATIGUE [None]
  - INTRACRANIAL HYPOTENSION [None]
  - COGNITIVE DISORDER [None]
  - NERVOUS SYSTEM DISORDER [None]
  - SUBDURAL HAEMATOMA [None]
  - FINE MOTOR DELAY [None]
  - SPINAL MENINGEAL CYST [None]
  - DEPRESSION [None]
